FAERS Safety Report 7478290-0 (Version None)
Quarter: 2011Q2

REPORT INFORMATION
  Report Type: 
  Country: None (occurrence: None)
  Receive Date: 20110513
  Receipt Date: 20110510
  Transmission Date: 20111010
  Serious: Yes (Hospitalization)
  Sender: FDA-Public Use
  Company Number: PHHY2011BE36730

PATIENT
  Sex: Female

DRUGS (11)
  1. LIORESAL [Suspect]
     Indication: PAIN
     Dosage: 25 MG, TID
     Route: 048
  2. OMEPRAZOLE [Concomitant]
  3. IBRUPROFEN [Concomitant]
  4. CYMBALTA [Concomitant]
  5. INDERAL [Concomitant]
  6. ZOPICLONE [Concomitant]
  7. ZANTAC [Concomitant]
  8. TEGRETOL [Suspect]
     Indication: PAIN
     Dosage: 200 MG, QID
     Route: 048
  9. CIPROFLOXACIN [Concomitant]
  10. LITICAN [Concomitant]
  11. DOMINAL [Concomitant]

REACTIONS (3)
  - TOXICITY TO VARIOUS AGENTS [None]
  - OVERDOSE [None]
  - ABDOMINAL PAIN UPPER [None]
